FAERS Safety Report 9607558 (Version 1)
Quarter: 2013Q4

REPORT INFORMATION
  Report Type: Spontaneous
  Country: PK (occurrence: PK)
  Receive Date: 20131009
  Receipt Date: 20131009
  Transmission Date: 20140711
  Serious: Yes (Hospitalization)
  Sender: FDA-Public Use
  Company Number: PHHY2013PK112680

PATIENT
  Age: 45 Year
  Sex: Male

DRUGS (2)
  1. CATAFLAM [Suspect]
     Dosage: 50 MG, UNK
     Route: 048
     Dates: start: 20131007, end: 20131007
  2. TERNELIN [Suspect]
     Dosage: 2 MG, UNK
     Route: 048
     Dates: start: 20131007, end: 20131007

REACTIONS (6)
  - Hypersensitivity [Recovering/Resolving]
  - Skin irritation [Unknown]
  - Dyspnoea [Unknown]
  - Chest discomfort [Unknown]
  - Blepharitis [Unknown]
  - Eyelid oedema [Unknown]
